FAERS Safety Report 6446192-4 (Version None)
Quarter: 2009Q4

REPORT INFORMATION
  Report Type: 
  Country: None (occurrence: None)
  Receive Date: 20091119
  Receipt Date: 20091109
  Transmission Date: 20100525
  Serious: Yes (Other)
  Sender: FDA-Public Use
  Company Number: US-JNJFOC-20090904928

PATIENT
  Sex: Female
  Weight: 81.65 kg

DRUGS (7)
  1. FENTANYL CITRATE [Suspect]
     Indication: BACK PAIN
     Dosage: EVERY 48 TO 72 HOURS
     Route: 062
  2. NEURONTIN [Concomitant]
     Indication: CONVULSION
     Route: 048
  3. DILANTIN [Concomitant]
     Dosage: 5 CAPSULES OF 100 MG TO MAKE A DOSE OF 500 MG AT PM
     Route: 048
  4. DILANTIN [Concomitant]
     Indication: CONVULSION
     Dosage: 100 MG CAPSULES 4 TIMES AT AM TO MAKE A DOSE OF 400 MG
     Route: 048
  5. VALIUM [Concomitant]
     Indication: CONVULSION
     Dosage: HALF OF 5MG TABLET
     Route: 048
  6. SYNTHROID [Concomitant]
     Indication: THYROID DISORDER
     Route: 048
  7. HYDROCODONE [Concomitant]
     Indication: BREAKTHROUGH PAIN
     Dosage: 10/325 MG
     Route: 048

REACTIONS (11)
  - BACK PAIN [None]
  - CONVULSION [None]
  - DRUG DISPENSING ERROR [None]
  - DRUG PRESCRIBING ERROR [None]
  - EXPIRED DRUG ADMINISTERED [None]
  - INAPPROPRIATE SCHEDULE OF DRUG ADMINISTRATION [None]
  - INTENTIONAL DRUG MISUSE [None]
  - NAUSEA [None]
  - PRODUCT QUALITY ISSUE [None]
  - THERAPEUTIC RESPONSE DECREASED [None]
  - WRONG TECHNIQUE IN DRUG USAGE PROCESS [None]
